FAERS Safety Report 4365015-0 (Version None)
Quarter: 2004Q2

REPORT INFORMATION
  Report Type: 
  Country: None (occurrence: None)
  Receive Date: 20040521
  Receipt Date: 20040506
  Transmission Date: 20050107
  Serious: Yes (Hospitalization)
  Sender: FDA-Public Use
  Company Number: S04-USA-02770-01

PATIENT
  Age: 38 Year
  Sex: Female

DRUGS (7)
  1. CELEXA [Suspect]
     Indication: BIPOLAR DISORDER
     Dosage: 120 MG QD PO
     Route: 048
     Dates: start: 20040401
  2. CELEXA [Suspect]
     Indication: BIPOLAR DISORDER
     Dates: start: 20000601, end: 20030701
  3. CELEXA [Suspect]
     Indication: BIPOLAR DISORDER
     Dosage: 60 MG QD PO
     Route: 048
     Dates: start: 20030701, end: 20031201
  4. CELEXA [Suspect]
     Indication: BIPOLAR DISORDER
     Dosage: 100 MG QD PO
     Route: 048
     Dates: start: 20031201, end: 20040401
  5. NEURONTIN [Concomitant]
  6. WELLBUTRIN [Concomitant]
  7. LORAZEPAM [Concomitant]

REACTIONS (1)
  - HAEMORRHAGIC STROKE [None]
